FAERS Safety Report 17640878 (Version 1)
Quarter: 2020Q2

REPORT INFORMATION
  Report Type: Spontaneous
  Country: GB (occurrence: GB)
  Receive Date: 20200408
  Receipt Date: 20200408
  Transmission Date: 20200713
  Serious: Yes (Life-Threatening, Hospitalization, Other)
  Sender: FDA-Public Use
  Company Number: GB-AUROBINDO-AUR-APL-2020-016960

PATIENT
  Age: 52 Year
  Sex: Male
  Weight: 69 kg

DRUGS (2)
  1. ERYTHROMYCIN. [Concomitant]
     Active Substance: ERYTHROMYCIN
     Indication: PRODUCT USED FOR UNKNOWN INDICATION
     Dosage: UNK
     Route: 065
  2. MIRTAZAPINE. [Suspect]
     Active Substance: MIRTAZAPINE
     Indication: DEPRESSION
     Dosage: 45 MILLIGRAM
     Route: 048
     Dates: end: 20200303

REACTIONS (4)
  - Mouth ulceration [Unknown]
  - Rash pustular [Unknown]
  - Stevens-Johnson syndrome [Recovering/Resolving]
  - Oxygen saturation decreased [Unknown]
